FAERS Safety Report 8908937 (Version 1)
Quarter: 2012Q4

REPORT INFORMATION
  Report Type: 
  Country: US (occurrence: US)
  Receive Date: 20121114
  Receipt Date: 20121114
  Transmission Date: 20130627
  Serious: No
  Sender: FDA-Public Use
  Company Number: US-MYLANLABS-2012S1004796

PATIENT
  Age: 68 Year
  Sex: Female
  Weight: 83.01 kg

DRUGS (5)
  1. TRIAMTERENE + HYDROCHLOROTHIAZIDE [Suspect]
     Indication: HYPERTENSION
     Route: 048
     Dates: start: 20120209
  2. EVISTA [Concomitant]
  3. ASPIRIN [Concomitant]
  4. CRANBERRY [Concomitant]
  5. ALOE VERA JUICE [Concomitant]

REACTIONS (7)
  - Drug ineffective [Unknown]
  - Blood pressure increased [Unknown]
  - Headache [Recovered/Resolved]
  - Swelling [Unknown]
  - Diarrhoea [Recovered/Resolved]
  - Rash [Not Recovered/Not Resolved]
  - Fatigue [Unknown]
